FAERS Safety Report 5736152-0 (Version None)
Quarter: 2008Q2

REPORT INFORMATION
  Report Type: 
  Country: None (occurrence: None)
  Receive Date: 20080509
  Receipt Date: 20080509
  Transmission Date: 20081010
  Serious: No
  Sender: FDA-Public Use
  Company Number: None

PATIENT
  Age: 19 Year
  Sex: Male

DRUGS (1)
  1. TOBRADEX [Suspect]
     Dosage: 1 DROP INTO EYE
     Dates: start: 20080223, end: 20080223

REACTIONS (6)
  - CHEMICAL BURNS OF EYE [None]
  - EYE IRRITATION [None]
  - HEADACHE [None]
  - INSTILLATION SITE IRRITATION [None]
  - PAIN [None]
  - VOMITING [None]
